FAERS Safety Report 20508964 (Version 1)
Quarter: 2022Q1

REPORT INFORMATION
  Report Type: Spontaneous
  Country: US (occurrence: None)
  Receive Date: 20220218
  Receipt Date: 20220218
  Transmission Date: 20220423
  Serious: Yes (Hospitalization)
  Sender: FDA-Public Use
  Company Number: None

PATIENT
  Age: 86 Year
  Sex: Male
  Weight: 64.9 kg

DRUGS (11)
  1. TEBENTAFUSP [Suspect]
     Active Substance: TEBENTAFUSP
     Indication: Uveal melanoma
     Dosage: FREQUENCY : WEEKLY;?
     Route: 042
     Dates: start: 20211105
  2. TERAZOSIN [Concomitant]
  3. WARFARIN [Concomitant]
     Active Substance: WARFARIN
  4. LISINOPRIL [Concomitant]
     Active Substance: LISINOPRIL
  5. GLIMEPIRIDE [Concomitant]
     Active Substance: GLIMEPIRIDE
  6. ROSUVASTATIN [Concomitant]
     Active Substance: ROSUVASTATIN
  7. METOPROLOL [Concomitant]
  8. METFORMIN [Concomitant]
     Active Substance: METFORMIN HYDROCHLORIDE
  9. LEVOTHYROXINE [Concomitant]
     Active Substance: LEVOTHYROXINE
  10. ASPIRIN [Concomitant]
  11. TRAMADOL [Concomitant]
     Active Substance: TRAMADOL

REACTIONS (10)
  - Muscular weakness [None]
  - Fatigue [None]
  - Decreased appetite [None]
  - Fall [None]
  - Aspartate aminotransferase increased [None]
  - Alanine aminotransferase increased [None]
  - International normalised ratio increased [None]
  - Blood alkaline phosphatase increased [None]
  - Prothrombin level increased [None]
  - Asymptomatic COVID-19 [None]

NARRATIVE: CASE EVENT DATE: 20220215
